FAERS Safety Report 6730421-3 (Version None)
Quarter: 2010Q2

REPORT INFORMATION
  Report Type: 
  Country: None (occurrence: None)
  Receive Date: 20100518
  Receipt Date: 20100510
  Transmission Date: 20101027
  Serious: Yes (Other)
  Sender: FDA-Public Use
  Company Number: B0621411A

PATIENT
  Sex: Female
  Weight: 48 kg

DRUGS (3)
  1. TYKERB [Suspect]
     Indication: BREAST CANCER RECURRENT
     Dosage: 1250MG PER DAY
     Route: 048
     Dates: start: 20091130, end: 20100225
  2. XELODA [Suspect]
     Indication: DRUG USE FOR UNKNOWN INDICATION
     Dosage: 3000MG PER DAY
     Route: 048
     Dates: start: 20091130, end: 20100225
  3. ZOMETA [Concomitant]
     Route: 042
     Dates: start: 20091127, end: 20100318

REACTIONS (7)
  - BLOOD ALBUMIN DECREASED [None]
  - BLOOD BILIRUBIN INCREASED [None]
  - DIARRHOEA [None]
  - NAUSEA [None]
  - PALMAR-PLANTAR ERYTHRODYSAESTHESIA SYNDROME [None]
  - RASH [None]
  - STOMATITIS [None]
